FAERS Safety Report 8760681 (Version 1)
Quarter: 2012Q4

REPORT INFORMATION
  Report Type: 
  Country: BR (occurrence: BR)
  Receive Date: 20120830
  Receipt Date: 20120830
  Transmission Date: 20130627
  Serious: Yes (Other)
  Sender: FDA-Public Use
  Company Number: BR-EISAI INC-E3810-05827-SPO-BR

PATIENT
  Age: 53 Year
  Sex: Female
  Weight: 45 kg

DRUGS (1)
  1. PARIET [Suspect]
     Indication: GASTRITIS
     Dosage: UNKNOWN
     Route: 048
     Dates: start: 20120702, end: 20120704

REACTIONS (1)
  - Cystitis [Recovered/Resolved]
